FAERS Safety Report 8439237-3 (Version None)
Quarter: 2012Q2

REPORT INFORMATION
  Report Type: 
  Country: None (occurrence: None)
  Receive Date: 20120615
  Receipt Date: 20120608
  Transmission Date: 20120825
  Serious: Yes (Hospitalization, Other)
  Sender: FDA-Public Use
  Company Number: PHFR2012GB002672

PATIENT
  Sex: Female

DRUGS (7)
  1. CLOZARIL [Suspect]
     Indication: SCHIZOPHRENIA
     Dosage: 200 MG, QD (75 MG MANE AND 125 MG NOCTE)
     Route: 048
     Dates: start: 20050715
  2. VINCRISTINE SULFATE [Concomitant]
     Dosage: UNK UKN, UNK
     Dates: start: 20120427
  3. CYCLOPHOSPHAMIDE [Concomitant]
     Dosage: UNK UKN, UNK
     Dates: start: 20120427
  4. DULOXETIME HYDROCHLORIDE [Concomitant]
     Dosage: 60 MG, QD
     Route: 048
  5. RITUXIMAB [Concomitant]
     Dosage: UNK UKN, UNK
     Dates: start: 20120427
  6. PREDNISOLONE [Concomitant]
     Dosage: UNK UKN, UNK
     Dates: start: 20120427
  7. VALPROIC ACID [Concomitant]
     Dosage: 200 MG, QD
     Route: 048

REACTIONS (4)
  - WHITE BLOOD CELL COUNT DECREASED [None]
  - BREAST CANCER [None]
  - NEUTROPENIA [None]
  - PLATELET COUNT DECREASED [None]
